FAERS Safety Report 5522024-3 (Version None)
Quarter: 2007Q4

REPORT INFORMATION
  Report Type: 
  Country: None (occurrence: None)
  Receive Date: 20071120
  Receipt Date: 20071116
  Transmission Date: 20080405
  Serious: Yes (Other)
  Sender: FDA-Public Use
  Company Number: DE-AVENTIS-200712426DE

PATIENT
  Age: 55 Year
  Sex: Male
  Weight: 86 kg

DRUGS (6)
  1. LANTUS [Suspect]
     Route: 058
     Dates: start: 20040101
  2. METFORMIN 850 [Concomitant]
     Dosage: DOSE: NOT REPORTED
     Route: 048
  3. GLYBURIDE [Concomitant]
     Dosage: DOSE: NOT REPORTED
     Route: 048
  4. L-THYROXIN [Concomitant]
     Indication: DRUG USE FOR UNKNOWN INDICATION
     Dosage: DOSE: NOT REPORTED
     Route: 048
  5. DOXEPIN HCL [Concomitant]
     Indication: DRUG USE FOR UNKNOWN INDICATION
     Dosage: DOSE: NOT REPORTED
     Route: 048
  6. LISIGAMMA HCT                      /00977901/ [Concomitant]
     Indication: HYPERTENSION
     Dosage: DOSE: 10/12.5
     Route: 048

REACTIONS (2)
  - MACULAR DEGENERATION [None]
  - MEDICATION ERROR [None]
